FAERS Safety Report 9498680 (Version 1)
Quarter: 2013Q3

REPORT INFORMATION
  Report Type: Spontaneous
  Country: US (occurrence: US)
  Receive Date: 20130904
  Receipt Date: 20130904
  Transmission Date: 20140515
  Serious: Yes (Other)
  Sender: FDA-Public Use
  Company Number: US-BAYER-2013-106894

PATIENT
  Age: 21 Year
  Sex: Female
  Weight: 39 kg

DRUGS (2)
  1. PHILLIPS^ MILK OF MAGNESIA [Suspect]
     Indication: CONSTIPATION
     Dosage: UNK
     Route: 048
     Dates: start: 201308
  2. ZANTAC [Concomitant]
     Dosage: UNK UNK, PRN

REACTIONS (5)
  - Frequent bowel movements [None]
  - Haematochezia [None]
  - Drug ineffective [None]
  - Menstruation delayed [None]
  - Abdominal tenderness [Not Recovered/Not Resolved]
